FAERS Safety Report 15850321 (Version 1)
Quarter: 2019Q1

REPORT INFORMATION
  Report Type: Spontaneous
  Country: US (occurrence: US)
  Receive Date: 20190121
  Receipt Date: 20190121
  Transmission Date: 20190417
  Serious: No
  Sender: FDA-Public Use
  Company Number: US-PFIZER INC-2019021347

PATIENT
  Age: 60 Year
  Sex: Male
  Weight: 127 kg

DRUGS (10)
  1. LEVOTHYROXINE [LEVOTHYROXINE SODIUM] [Concomitant]
     Indication: THYROID DISORDER
     Dosage: 50 MG, 1X/DAY, [1 TABLET IN THE MORNING/30 MINUTES PRIOR TO MEAL]
     Route: 048
     Dates: start: 201811
  2. MULTIVITAMIN ADULT OVER 50 [Concomitant]
     Indication: ROUTINE HEALTH MAINTENANCE
     Dosage: 1 DF, 1X/DAY
     Route: 048
  3. GLUCOSAMINE CHONDROITIN [CHONDROITIN SULFATE;GLUCOSAMINE SULFATE] [Concomitant]
     Indication: ARTHRITIS
  4. LYRICA [Suspect]
     Active Substance: PREGABALIN
     Dosage: 100 MG CAPSULE, TAKE 1 AT BEDTIME, 50 MG TAKES 1 IN MORNING AND 1 IN AFTERNOON
     Route: 048
  5. FISH OIL [Concomitant]
     Active Substance: FISH OIL
     Indication: CARDIAC DISORDER
     Dosage: 1400 MG, 1X/DAY, [IN THE EVENING]
     Route: 048
  6. IRON [Concomitant]
     Active Substance: IRON
     Indication: RESTLESS LEGS SYNDROME
     Dosage: 65 MG, 1X/DAY, [65 MG EQUIVALENT TO 325 MG OF FERROUS SULFATE TABLET, TAKES 1 TABLET AT NIGHT]
     Route: 048
  7. LYRICA [Suspect]
     Active Substance: PREGABALIN
     Indication: CONGENITAL NEUROPATHY
     Dosage: 50 MG, 3X/DAY, [50 MG IN THE MORNING, 50 MG DURING THE DAY, AND 50 MG AT NIGHT]
     Route: 048
     Dates: start: 2018
  8. GLUCOSAMINE CHONDROITIN [CHONDROITIN SULFATE;GLUCOSAMINE SULFATE] [Concomitant]
     Indication: ARTHROPATHY
     Dosage: 2 DF, 1X/DAY, [CHONDROITIN SULFATE 1200 MG, GLUCOSAMINE SULFATE 1500 MG]
     Route: 048
  9. GLUCOSAMINE CHONDROITIN [CHONDROITIN SULFATE;GLUCOSAMINE SULFATE] [Concomitant]
     Indication: CHONDROPATHY
  10. OMEPRAZOLE. [Concomitant]
     Active Substance: OMEPRAZOLE
     Indication: GASTROOESOPHAGEAL REFLUX DISEASE
     Dosage: 40 MG, 1X/DAY, [ONE EVERY MORNING]
     Route: 048

REACTIONS (2)
  - Drug ineffective for unapproved indication [Unknown]
  - Weight increased [Unknown]
